FAERS Safety Report 5067884-8 (Version None)
Quarter: 2006Q3

REPORT INFORMATION
  Report Type: 
  Country: None (occurrence: None)
  Receive Date: 20060731
  Receipt Date: 20060720
  Transmission Date: 20061208
  Serious: Yes (Other)
  Sender: FDA-Public Use
  Company Number: 163-20785-06070559

PATIENT
  Sex: Female

DRUGS (1)
  1. THALOMID [Suspect]
     Indication: SARCOIDOSIS
     Dosage: 2 IN 1 D, ORAL
     Route: 048
     Dates: start: 20060614

REACTIONS (1)
  - NO ADVERSE EFFECT [None]
